FAERS Safety Report 7671777-7 (Version None)
Quarter: 2011Q3

REPORT INFORMATION
  Report Type: 
  Country: None (occurrence: None)
  Receive Date: 20110809
  Receipt Date: 20110802
  Transmission Date: 20111222
  Serious: Yes (Hospitalization)
  Sender: FDA-Public Use
  Company Number: IT-ROCHE-758208

PATIENT
  Sex: Female

DRUGS (8)
  1. FOLINA [Concomitant]
     Dates: start: 20031117
  2. MEPRAL [Concomitant]
     Dates: start: 20030801
  3. CACIT D3 [Concomitant]
     Dates: start: 20030801
  4. MEDROL [Concomitant]
     Route: 048
     Dates: start: 20020411
  5. ACTEMRA [Suspect]
     Dosage: FREQUENCY: MONTHLY
     Route: 042
     Dates: start: 20091215
  6. ACTEMRA [Suspect]
     Route: 042
     Dates: start: 20100526, end: 20100630
  7. ZOLPIDEM [Concomitant]
     Route: 048
     Dates: start: 20090224
  8. METHOTREXATE [Concomitant]
     Route: 042
     Dates: start: 20031117

REACTIONS (5)
  - DIARRHOEA [None]
  - DECREASED APPETITE [None]
  - NAUSEA [None]
  - INFUSION RELATED REACTION [None]
  - ABDOMINAL PAIN [None]
